FAERS Safety Report 4853459-X (Version None)
Quarter: 2005Q4

REPORT INFORMATION
  Report Type: 
  Country: None (occurrence: None)
  Receive Date: 20051130
  Receipt Date: 20050929
  Transmission Date: 20060501
  Serious: No
  Sender: FDA-Public Use
  Company Number: WAES 0510USA03925

PATIENT
  Age: 64 Year
  Sex: Male

DRUGS (2)
  1. ZETIA [Suspect]
     Dosage: UNIK/UNK/PO
     Route: 048
  2. CRESTOR [Concomitant]

REACTIONS (1)
  - RASH [None]
